FAERS Safety Report 22170186 (Version 2)
Quarter: 2023Q2

REPORT INFORMATION
  Report Type: Spontaneous
  Country: US (occurrence: US)
  Receive Date: 20230404
  Receipt Date: 20230411
  Transmission Date: 20230722
  Serious: No
  Sender: FDA-Public Use
  Company Number: US-SANOFI-01555229

PATIENT
  Sex: Male

DRUGS (2)
  1. TOUJEO MAX [Suspect]
     Active Substance: INSULIN GLARGINE
     Dosage: 32 IU, QD
  2. INSULIN ASPART [Suspect]
     Active Substance: INSULIN ASPART

REACTIONS (1)
  - Blood glucose increased [Unknown]
